FAERS Safety Report 20198033 (Version 1)
Quarter: 2021Q4

REPORT INFORMATION
  Report Type: Spontaneous
  Country: US (occurrence: US)
  Receive Date: 20211217
  Receipt Date: 20211217
  Transmission Date: 20220303
  Serious: No
  Sender: FDA-Public Use
  Company Number: US-ALLERGAN-2124158US

PATIENT
  Sex: Female

DRUGS (4)
  1. PRED FORTE [Suspect]
     Active Substance: PREDNISOLONE ACETATE
     Indication: Uveitis
     Dosage: ONE DROP EVERY 2-3 HOURS THEN ONCE A DAY THEN EVERY OTHER DAY
     Dates: start: 20210602
  2. PRED FORTE [Suspect]
     Active Substance: PREDNISOLONE ACETATE
     Indication: Eye inflammation
  3. INDOMETHACIN [Concomitant]
     Active Substance: INDOMETHACIN
     Indication: Ankylosing spondylitis
     Dosage: 75 MG DAILY
  4. CYTOTEC [Concomitant]
     Active Substance: MISOPROSTOL
     Indication: Prophylaxis
     Dosage: 200 MG DAILY

REACTIONS (1)
  - Off label use [Unknown]
